FAERS Safety Report 4507366-2 (Version None)
Quarter: 2004Q4

REPORT INFORMATION
  Report Type: 
  Country: None (occurrence: None)
  Receive Date: 20041119
  Receipt Date: 20041117
  Transmission Date: 20050328
  Serious: Yes (Hospitalization)
  Sender: FDA-Public Use
  Company Number: 04-11-1595

PATIENT
  Age: 44 Year
  Sex: Male

DRUGS (2)
  1. CLOZAPINE [Suspect]
     Indication: SCHIZOPHRENIA, PARANOID TYPE
     Dosage: 750MG QD ORAL
     Route: 048
     Dates: start: 20011201
  2. CHEMOTHERAPY [Concomitant]

REACTIONS (2)
  - NEOPLASM MALIGNANT [None]
  - TRACHEAL OBSTRUCTION [None]
